FAERS Safety Report 23993962 (Version 1)
Quarter: 2024Q2

REPORT INFORMATION
  Report Type: Spontaneous
  Country: US (occurrence: None)
  Receive Date: 20240618
  Receipt Date: 20240618
  Transmission Date: 20240716
  Serious: Yes (Hospitalization)
  Sender: FDA-Public Use
  Company Number: None

PATIENT
  Sex: Female

DRUGS (7)
  1. GAMMAGARD LIQUID [Suspect]
     Active Substance: HUMAN IMMUNOGLOBULIN G
     Indication: Immunodeficiency common variable
     Dosage: 20GRAMS EVERY WEEK IV
     Route: 042
     Dates: start: 202201
  2. GAMMAGARD LIQUID [Suspect]
     Active Substance: HUMAN IMMUNOGLOBULIN G
     Indication: Immunodeficiency common variable
     Dosage: 5 GRAM WEEKLY IV
     Route: 042
     Dates: start: 202201
  3. NORMAL SALINE FLUSH [Concomitant]
  4. HEPARIN [Concomitant]
  5. TALTZ [Concomitant]
  6. DUPIXENT [Concomitant]
     Active Substance: DUPILUMAB
  7. SODIUM CHLORIDE [Concomitant]
     Active Substance: SODIUM CHLORIDE

REACTIONS (2)
  - Blood potassium decreased [None]
  - Pyrexia [None]
